FAERS Safety Report 4432618-4 (Version None)
Quarter: 2004Q3

REPORT INFORMATION
  Report Type: 
  Country: None (occurrence: None)
  Receive Date: 20040820
  Receipt Date: 20040804
  Transmission Date: 20050211
  Serious: Yes (Hospitalization)
  Sender: FDA-Public Use
  Company Number: SU-2004-002572

PATIENT
  Age: 76 Year
  Sex: Female
  Weight: 97.977 kg

DRUGS (7)
  1. BENICAR HCT [Suspect]
     Indication: HYPERTENSION
     Dosage: 40.125 MG QD PO
     Route: 048
     Dates: start: 20040517, end: 20040629
  2. BENICAR HCT [Suspect]
     Indication: HYPERTENSION
     Dosage: 40.125 MG QD PO
     Route: 048
     Dates: start: 20040709
  3. CLONIDINE HCL [Concomitant]
  4. PREMARIN /NEZ/ [Concomitant]
  5. PLAVIX [Concomitant]
  6. PRILOSEC [Concomitant]
  7. PRAVACHOL [Concomitant]

REACTIONS (3)
  - TRANSIENT ISCHAEMIC ATTACK [None]
  - VERTEBROBASILAR INSUFFICIENCY [None]
  - WEIGHT INCREASED [None]
